FAERS Safety Report 10110916 (Version 2)
Quarter: 2014Q4

REPORT INFORMATION
  Report Type: Other
  Country: US (occurrence: US)
  Receive Date: 20140425
  Receipt Date: 20141209
  Transmission Date: 20150528
  Serious: Yes (Death, Hospitalization, Other)
  Sender: FDA-Public Use
  Company Number: US-GSKPPD-2014GSK007961

PATIENT
  Age: 85 Year
  Sex: Male

DRUGS (6)
  1. AVANDIA [Suspect]
     Active Substance: ROSIGLITAZONE MALEATE
     Indication: DIABETES MELLITUS
     Dosage: DATES OF AVANDIA USE COULD NOT BE CONFIRMED IN RECORDS REVIEWED.
     Route: 048
  2. LASIX [Concomitant]
     Active Substance: FUROSEMIDE
  3. DIGOXIN. [Concomitant]
     Active Substance: DIGOXIN
  4. COUMADIN [Concomitant]
     Active Substance: WARFARIN SODIUM
  5. AVAPRO [Concomitant]
     Active Substance: IRBESARTAN
  6. COREG [Concomitant]
     Active Substance: CARVEDILOL

REACTIONS (2)
  - Myocardial infarction [Unknown]
  - Arteriosclerosis [Fatal]

NARRATIVE: CASE EVENT DATE: 20060509
